FAERS Safety Report 13922195 (Version 2)
Quarter: 2017Q4

REPORT INFORMATION
  Report Type: Spontaneous
  Country: IN (occurrence: IN)
  Receive Date: 20170830
  Receipt Date: 20171017
  Transmission Date: 20180320
  Serious: Yes (Hospitalization)
  Sender: FDA-Public Use
  Company Number: IN-SA-2017SA157868

PATIENT
  Age: 15 Year
  Sex: Male

DRUGS (2)
  1. INSULIN GLARGINE [Suspect]
     Active Substance: INSULIN GLARGINE
     Indication: TYPE 1 DIABETES MELLITUS
     Dosage: DOSE:16 UNIT(S)
     Route: 030
  2. INSULIN HUMAN REGULAR [Suspect]
     Active Substance: INSULIN HUMAN
     Indication: TYPE 1 DIABETES MELLITUS
     Dosage: 8-8-10 UNITS WITH 3 MAJOR MEALS
     Route: 030

REACTIONS (8)
  - Drug dose omission [Unknown]
  - Hyperglycaemia [Unknown]
  - Diabetic ketoacidosis [Recovered/Resolved]
  - Lipohypertrophy [Recovering/Resolving]
  - Lack of injection site rotation [Unknown]
  - Incorrect route of drug administration [Unknown]
  - Wrong technique in product usage process [Unknown]
  - Incorrect dose administered [Unknown]
